FAERS Safety Report 7483518-7 (Version None)
Quarter: 2011Q2

REPORT INFORMATION
  Report Type: 
  Country: None (occurrence: None)
  Receive Date: 20110517
  Receipt Date: 20110502
  Transmission Date: 20111010
  Serious: No
  Sender: FDA-Public Use
  Company Number: US-TYCO HEALTHCARE/MALLINCKRODT-T201100919

PATIENT
  Age: 60 Year
  Sex: Female

DRUGS (2)
  1. ALL OTHER THERAPEUTIC PRODUCTS [Concomitant]
  2. EXALGO [Suspect]
     Dosage: TOOK TWO TABLETS BY MISTAKE
     Route: 048
     Dates: start: 20110328

REACTIONS (1)
  - INCORRECT DOSE ADMINISTERED [None]
